FAERS Safety Report 21279479 (Version 1)
Quarter: 2022Q3

REPORT INFORMATION
  Report Type: Spontaneous
  Country: US (occurrence: US)
  Receive Date: 20220901
  Receipt Date: 20220901
  Transmission Date: 20221026
  Serious: No
  Sender: FDA-Public Use
  Company Number: US-TEVA-2022-US-2066263

PATIENT
  Sex: Female

DRUGS (2)
  1. METFORMIN [Suspect]
     Active Substance: METFORMIN HYDROCHLORIDE
     Indication: Product used for unknown indication
     Dosage: 2000 MILLIGRAM DAILY;  WHITE LONG OVAL PILLS WITH A LINE IN THE MIDDLE, AND Z71 DEBOSSED IN THE PILL
     Route: 065
  2. METFORMIN [Suspect]
     Active Substance: METFORMIN HYDROCHLORIDE
     Dosage: DOSAGE HAD BEEN UPPED
     Route: 065
     Dates: end: 20220812

REACTIONS (2)
  - Protein urine present [Unknown]
  - Cholelithiasis [Unknown]
